FAERS Safety Report 4649286-9 (Version None)
Quarter: 2005Q2

REPORT INFORMATION
  Report Type: 
  Country: None (occurrence: None)
  Receive Date: 20050429
  Receipt Date: 20050203
  Transmission Date: 20051028
  Serious: Yes (Other)
  Sender: FDA-Public Use
  Company Number: US-MERCK-0502USA00505

PATIENT
  Age: 55 Year
  Sex: Male

DRUGS (6)
  1. VIOXX [Suspect]
     Indication: PAIN
     Route: 048
  2. DIAZEPAM [Concomitant]
     Route: 065
  3. PROZAC [Concomitant]
     Route: 065
  4. PROTONIX [Concomitant]
     Route: 065
  5. TESTOSTERONE [Concomitant]
     Indication: HORMONE LEVEL ABNORMAL
     Route: 065
  6. CRESTOR [Concomitant]
     Route: 065

REACTIONS (4)
  - ANGINA PECTORIS [None]
  - CEREBROVASCULAR ACCIDENT [None]
  - DIARRHOEA [None]
  - VOMITING [None]
